FAERS Safety Report 15766672 (Version 2)
Quarter: 2019Q3

REPORT INFORMATION
  Report Type: Report from Study
  Country: US (occurrence: US)
  Receive Date: 20181227
  Receipt Date: 20190802
  Transmission Date: 20191004
  Serious: Yes (Other)
  Sender: FDA-Public Use
  Company Number: US-ROCHE-2236572

PATIENT
  Sex: Female
  Weight: 82.63 kg

DRUGS (7)
  1. PEPCIDIN [Concomitant]
     Indication: PREMEDICATION
     Route: 042
     Dates: start: 201812
  2. OCREVUS [Suspect]
     Active Substance: OCRELIZUMAB
     Indication: RELAPSING MULTIPLE SCLEROSIS
     Dosage: SECOND HALF-DOSE: 20/JAN/201?LAST FULL DOSE: 20/JUN/2019
     Route: 042
     Dates: start: 20181220
  3. BACLOFEN. [Concomitant]
     Active Substance: BACLOFEN
     Route: 065
  4. EPIPEN [Concomitant]
     Active Substance: EPINEPHRINE
     Route: 030
     Dates: start: 2010
  5. BENADRYL [Concomitant]
     Active Substance: DIPHENHYDRAMINE HYDROCHLORIDE
     Route: 065
     Dates: start: 201812
  6. LORATADINE. [Concomitant]
     Active Substance: LORATADINE
     Route: 065
  7. AMPYRA [Concomitant]
     Active Substance: DALFAMPRIDINE
     Route: 065

REACTIONS (2)
  - Herpes zoster [Recovered/Resolved]
  - Diarrhoea [Recovered/Resolved]
